FAERS Safety Report 24407474 (Version 1)
Quarter: 2024Q4

REPORT INFORMATION
  Report Type: Spontaneous
  Country: FR (occurrence: FR)
  Receive Date: 20241007
  Receipt Date: 20241007
  Transmission Date: 20250115
  Serious: Yes (Hospitalization, Other)
  Sender: ALEXION PHARMACEUTICALS
  Company Number: None

PATIENT
  Age: 55 Year
  Weight: 68 kg

DRUGS (4)
  1. FASENRA [Suspect]
     Active Substance: BENRALIZUMAB
     Indication: Asthma
     Dosage: 30MG, 1 INJECTION TOUTES LES 8 SEMAINES
  2. FASENRA [Suspect]
     Active Substance: BENRALIZUMAB
     Dosage: 30MG, 1 INJECTION TOUTES LES 8 SEMAINES
  3. FASENRA [Suspect]
     Active Substance: BENRALIZUMAB
     Dosage: 30MG, 1 INJECTION TOUTES LES 8 SEMAINES
  4. FASENRA [Suspect]
     Active Substance: BENRALIZUMAB
     Dosage: 30MG, 1 INJECTION TOUTES LES 8 SEMAINES

REACTIONS (1)
  - Acute myeloid leukaemia [Not Recovered/Not Resolved]
